FAERS Safety Report 7941234-9 (Version None)
Quarter: 2011Q4

REPORT INFORMATION
  Report Type: 
  Country: None (occurrence: None)
  Receive Date: 20111122
  Receipt Date: 20111110
  Transmission Date: 20120403
  Serious: Yes (Other)
  Sender: FDA-Public Use
  Company Number: 2010MA002609

PATIENT
  Age: 49 Year
  Sex: Female

DRUGS (7)
  1. AMISULPRIDE (AMISULPRIDE) [Suspect]
     Indication: SCHIZOPHRENIA
     Dosage: 200 MG; PO
     Route: 048
  2. CLOZARIL [Suspect]
     Indication: SCHIZOPHRENIA
     Dosage: 600 MG;QD;PO
     Route: 048
  3. TEMAZEPAM [Concomitant]
  4. CLOZARIL [Concomitant]
  5. RAMIPRIL [Suspect]
     Indication: HYPERTENSION
     Dosage: 10 MG;
  6. PAROXETINE TABLETS 30 MG (AELLC) [Concomitant]
  7. LAMOTRIGINE [Suspect]
     Indication: CONVULSION
     Dosage: 50 MG
     Dates: start: 20100801

REACTIONS (11)
  - GENERAL PHYSICAL HEALTH DETERIORATION [None]
  - MENTAL IMPAIRMENT [None]
  - HAEMOGLOBIN DECREASED [None]
  - NEUTROPHIL COUNT INCREASED [None]
  - BREAST CANCER METASTATIC [None]
  - METASTASES TO SPINE [None]
  - PLATELET COUNT DECREASED [None]
  - DISSEMINATED INTRAVASCULAR COAGULATION [None]
  - INFLUENZA LIKE ILLNESS [None]
  - BREAST ABSCESS [None]
  - WHITE BLOOD CELL COUNT INCREASED [None]
